FAERS Safety Report 10268623 (Version 1)
Quarter: 2014Q2

REPORT INFORMATION
  Report Type: Spontaneous
  Country: US (occurrence: None)
  Receive Date: 20140625
  Receipt Date: 20140625
  Transmission Date: 20141212
  Serious: Yes (Hospitalization)
  Sender: FDA-Public Use
  Company Number: UNT-2014-002479

PATIENT
  Age: 69 Year
  Sex: Female
  Weight: 73.9 kg

DRUGS (4)
  1. TYVASO [Suspect]
     Indication: COR PULMONALE CHRONIC
     Route: 055
     Dates: start: 20110521
  2. TRACLEER (BOSENTAN) [Concomitant]
  3. ADCIRCA (TADALAFIL) [Concomitant]
  4. COUMADIN (WARFARIN SODIUM) [Concomitant]

REACTIONS (2)
  - Fall [None]
  - Intervertebral disc compression [None]
